FAERS Safety Report 9274425 (Version 1)
Quarter: 2013Q2

REPORT INFORMATION
  Report Type: Spontaneous
  Country: FR (occurrence: FR)
  Receive Date: 20130506
  Receipt Date: 20130506
  Transmission Date: 20140414
  Serious: Yes (Other)
  Sender: FDA-Public Use
  Company Number: PHHY2013FR018407

PATIENT
  Age: 31 Year
  Sex: Male

DRUGS (1)
  1. LEPONEX [Suspect]
     Indication: SCHIZOPHRENIA
     Dosage: UNK UKN,18 WEEKS AGO

REACTIONS (3)
  - Mononucleosis syndrome [Not Recovered/Not Resolved]
  - Leukocytosis [Not Recovered/Not Resolved]
  - Granulocytosis [Not Recovered/Not Resolved]
